FAERS Safety Report 14217487 (Version 4)
Quarter: 2018Q1

REPORT INFORMATION
  Report Type: Report from Study
  Country: CZ (occurrence: CZ)
  Receive Date: 20171123
  Receipt Date: 20180227
  Transmission Date: 20180508
  Serious: Yes (Hospitalization)
  Sender: FDA-Public Use
  Company Number: CZ-ROCHE-2023318

PATIENT
  Age: 51 Year
  Sex: Female
  Weight: 105 kg

DRUGS (70)
  1. OCRELIZUMAB. [Suspect]
     Active Substance: OCRELIZUMAB
     Dosage: WEEK 24, CYCLE 6
     Route: 042
     Dates: start: 20150729, end: 20150729
  2. OCRELIZUMAB. [Suspect]
     Active Substance: OCRELIZUMAB
     Dosage: WEEK 96, CYCLE 9
     Route: 042
     Dates: start: 20161215, end: 20161215
  3. DITHIADEN [Concomitant]
     Active Substance: BISULEPIN
     Dosage: WEEK 72
     Route: 065
     Dates: start: 20140729
  4. DITHIADEN [Concomitant]
     Active Substance: BISULEPIN
     Dosage: OPEN LABEL OCRELIZUMAB WEEK 48
     Route: 065
     Dates: start: 20160112
  5. PARALEN (CZECH REPUBLIC) [Concomitant]
     Dosage: OPEN LABEL OCRELIZUMAB WEEK 72
     Route: 065
     Dates: start: 20160628
  6. METHYLPREDNISOLONE. [Concomitant]
     Active Substance: METHYLPREDNISOLONE
     Dosage: BASELINE (WEEK 1)
     Route: 065
     Dates: start: 20130312, end: 20130312
  7. METHYLPREDNISOLONE. [Concomitant]
     Active Substance: METHYLPREDNISOLONE
     Dosage: OPEN LABEL OCRELIZUMAB WEEK 24
     Route: 065
     Dates: start: 20150729, end: 20150729
  8. MILURIT [Concomitant]
     Active Substance: ALLOPURINOL
     Route: 065
     Dates: start: 2006
  9. PRESTARIUM NEO COMBI [Concomitant]
     Active Substance: INDAPAMIDE\PERINDOPRIL ARGININE
     Route: 065
     Dates: start: 20131219
  10. OCRELIZUMAB. [Suspect]
     Active Substance: OCRELIZUMAB
     Indication: RELAPSING-REMITTING MULTIPLE SCLEROSIS
     Dosage: WEEK 0, CYCLE 5, DAY 1 OF FIRST 24 WEEK CYCLE FOLLOWED BY DAY 1 OF EACH SUBSEQUENT 24 WEEK CYCLE AS
     Route: 042
     Dates: start: 20150210, end: 20150210
  11. METHYLPREDNISOLONE. [Concomitant]
     Active Substance: METHYLPREDNISOLONE
     Dosage: WEEK 72
     Route: 065
     Dates: start: 20140729, end: 20140729
  12. METHYLPREDNISOLONE. [Concomitant]
     Active Substance: METHYLPREDNISOLONE
     Dosage: OPEN LABEL OCRELIZUMAB WEEK 96
     Route: 065
     Dates: start: 20161215, end: 20161215
  13. METHYLPREDNISOLONE. [Concomitant]
     Active Substance: METHYLPREDNISOLONE
     Dosage: OPEN LABEL OCRELIZUMAB WEEK 120
     Route: 065
     Dates: start: 20170525, end: 20170525
  14. DETRALEX [Concomitant]
     Active Substance: DIOSMIN\HESPERIDIN
     Route: 065
     Dates: start: 2009
  15. DEPO-PROVERA [Concomitant]
     Active Substance: MEDROXYPROGESTERONE ACETATE
     Route: 065
     Dates: start: 20130124
  16. INTERFERON BETA-1A [Suspect]
     Active Substance: INTERFERON BETA-1A
     Dosage: MOST RECENT DOSE PRIOR TO SAE: 08/FEB/2015
     Route: 058
     Dates: start: 20150113
  17. DITHIADEN [Concomitant]
     Active Substance: BISULEPIN
     Dosage: OPEN LABEL OCRELIZUMAB WEEK 2
     Route: 065
     Dates: start: 20150224
  18. DITHIADEN [Concomitant]
     Active Substance: BISULEPIN
     Dosage: OPEN LABEL OCRELIZUMAB WEEK 24
     Route: 065
     Dates: start: 20150729
  19. PARALEN (CZECH REPUBLIC) [Concomitant]
     Dosage: OPEN LABEL OCRELIZUMAB-WEEK 0
     Route: 065
     Dates: start: 20150210
  20. PARALEN (CZECH REPUBLIC) [Concomitant]
     Dosage: OPEN LABEL OCRELIZUMAB WEEK 144
     Route: 065
     Dates: start: 20180213
  21. METHYLPREDNISOLONE. [Concomitant]
     Active Substance: METHYLPREDNISOLONE
     Dosage: WEEK 48
     Route: 065
     Dates: start: 20140210, end: 20140210
  22. FENISTIL (CZECH REPUBLIC) [Concomitant]
     Dosage: 1 GRAIN
     Route: 065
     Dates: start: 20130909, end: 201502
  23. V PNC [Concomitant]
     Route: 065
     Dates: start: 20170220, end: 20170302
  24. OCRELIZUMAB. [Suspect]
     Active Substance: OCRELIZUMAB
     Dosage: WEEK 2, CYCLE 5, DAY 15 OF FIRST 24 WEEK CYCLE FOLLOWED BY DAY 1 OF EACH SUBSEQUENT 24 WEEK CYCLE AS
     Route: 042
     Dates: start: 20150224, end: 20150224
  25. OCRELIZUMAB. [Suspect]
     Active Substance: OCRELIZUMAB
     Dosage: WEEK 144, CYCLE 11
     Route: 042
     Dates: start: 20180213, end: 20180213
  26. DITHIADEN [Concomitant]
     Active Substance: BISULEPIN
     Dosage: WEEK 48
     Route: 065
     Dates: start: 20140210
  27. PARALEN (CZECH REPUBLIC) [Concomitant]
     Dosage: WEEK 24
     Route: 065
     Dates: start: 20130909
  28. PARALEN (CZECH REPUBLIC) [Concomitant]
     Dosage: OPEN LABEL OCRELIZUMAB WEEK 2
     Route: 065
     Dates: start: 20150224
  29. METHYLPREDNISOLONE. [Concomitant]
     Active Substance: METHYLPREDNISOLONE
     Dosage: OPEN LABEL OCRELIZUMAB-WEEK 0
     Route: 065
     Dates: start: 20150210, end: 20150210
  30. PLACEBO [Suspect]
     Active Substance: UNSPECIFIED INGREDIENT
     Indication: RELAPSING-REMITTING MULTIPLE SCLEROSIS
     Dosage: WEEK 1, DAY 1 OF FIRST 24 WEEK CYCLE FOLLOWED BY DAY 1 OF EACH SUBSEQUENT 24 WEEK CYCLE AS PER PROTO
     Route: 042
     Dates: start: 20130312, end: 20130312
  31. PLACEBO [Suspect]
     Active Substance: UNSPECIFIED INGREDIENT
     Dosage: WEEK 2, DAY 15 OF FIRST 24 WEEK CYCLE FOLLOWED BY DAY 1 OF EACH SUBSEQUENT 24 WEEK CYCLE AS PER PROT
     Route: 042
     Dates: start: 20130327, end: 20130327
  32. OCRELIZUMAB. [Suspect]
     Active Substance: OCRELIZUMAB
     Dosage: WEEK 72, CYCLE 8
     Route: 042
     Dates: start: 20160628, end: 20160628
  33. DITHIADEN [Concomitant]
     Active Substance: BISULEPIN
     Dosage: BASELINE (WEEK 1)
     Route: 065
     Dates: start: 20130312
  34. METHYLPREDNISOLONE. [Concomitant]
     Active Substance: METHYLPREDNISOLONE
     Dosage: OPEN LABEL OCRELIZUMAB WEEK 48
     Route: 065
     Dates: start: 20160112, end: 20160112
  35. COMBISO [Concomitant]
     Route: 065
     Dates: start: 20131112, end: 20131219
  36. V PNC [Concomitant]
     Route: 065
     Dates: start: 20150310, end: 20150320
  37. LAGOSA [Concomitant]
  38. PLACEBO [Suspect]
     Active Substance: UNSPECIFIED INGREDIENT
     Dosage: WEEK 24, CYCLE 2
     Route: 042
     Dates: start: 20130909, end: 20130909
  39. OCRELIZUMAB. [Suspect]
     Active Substance: OCRELIZUMAB
     Dosage: WEEK 48, CYCLE 7
     Route: 042
     Dates: start: 20160112, end: 20160112
  40. DITHIADEN [Concomitant]
     Active Substance: BISULEPIN
     Dosage: OPEN LABEL OCRELIZUMAB-WEEK 0
     Route: 065
     Dates: start: 20150210
  41. DITHIADEN [Concomitant]
     Active Substance: BISULEPIN
     Dosage: OPEN LABEL OCRELIZUMAB WEEK 72
     Route: 065
     Dates: start: 20160628
  42. DITHIADEN [Concomitant]
     Active Substance: BISULEPIN
     Dosage: OPEN LABEL OCRELIZUMAB WEEK 144
     Route: 065
     Dates: start: 20180213
  43. PARALEN (CZECH REPUBLIC) [Concomitant]
     Dosage: WEEK 48
     Route: 065
     Dates: start: 20140210
  44. PARALEN (CZECH REPUBLIC) [Concomitant]
     Route: 065
     Dates: start: 20130605, end: 201502
  45. METHYLPREDNISOLONE. [Concomitant]
     Active Substance: METHYLPREDNISOLONE
     Dosage: WEEK 2
     Route: 065
     Dates: start: 20130327, end: 20130327
  46. METHYLPREDNISOLONE. [Concomitant]
     Active Substance: METHYLPREDNISOLONE
     Dosage: OPEN LABEL OCRELIZUMAB WEEK 72
     Route: 065
     Dates: start: 20160628, end: 20160628
  47. BETAXA [Concomitant]
     Route: 065
     Dates: start: 2004, end: 20131112
  48. WARFARIN [Concomitant]
     Active Substance: WARFARIN
     Route: 065
     Dates: start: 20150615, end: 20160504
  49. INTERFERON BETA-1A [Suspect]
     Active Substance: INTERFERON BETA-1A
     Indication: RELAPSING-REMITTING MULTIPLE SCLEROSIS
     Dosage: WITH PLACEBO INFUSIONS MATCHING OCRELIZUMAB INFUSION EVERY 24 WEEKS.
     Route: 058
     Dates: start: 20130312
  50. PLACEBO [Suspect]
     Active Substance: UNSPECIFIED INGREDIENT
     Dosage: WEEK 48, CYCLE 3
     Route: 042
     Dates: start: 20140210, end: 20140210
  51. OCRELIZUMAB. [Suspect]
     Active Substance: OCRELIZUMAB
     Dosage: WEEK 120, CYCLE 10
     Route: 042
     Dates: start: 20170525, end: 20170525
  52. DITHIADEN [Concomitant]
     Active Substance: BISULEPIN
     Dosage: WEEK 2
     Route: 065
     Dates: start: 20130327
  53. DITHIADEN [Concomitant]
     Active Substance: BISULEPIN
     Dosage: WEEK 24
     Route: 065
     Dates: start: 20130909
  54. DITHIADEN [Concomitant]
     Active Substance: BISULEPIN
     Dosage: OPEN LABEL OCRELIZUMAB WEEK 96
     Route: 065
     Dates: start: 20161215
  55. DITHIADEN [Concomitant]
     Active Substance: BISULEPIN
     Dosage: OPEN LABEL OCRELIZUMAB WEEK 120
     Route: 065
     Dates: start: 20170525
  56. PARALEN (CZECH REPUBLIC) [Concomitant]
     Dosage: WEEK 72
     Route: 065
     Dates: start: 20140729
  57. PARALEN (CZECH REPUBLIC) [Concomitant]
     Dosage: OPEN LABEL OCRELIZUMAB WEEK 24
     Route: 065
     Dates: start: 20150729
  58. PARALEN (CZECH REPUBLIC) [Concomitant]
     Dosage: OPEN LABEL OCRELIZUMAB WEEK 96
     Route: 065
     Dates: start: 20161215
  59. METHYLPREDNISOLONE. [Concomitant]
     Active Substance: METHYLPREDNISOLONE
     Dosage: WEEK 24
     Route: 065
     Dates: start: 20130909, end: 20130909
  60. METHYLPREDNISOLONE. [Concomitant]
     Active Substance: METHYLPREDNISOLONE
     Dosage: OPEN LABEL OCRELIZUMAB WEEK 144
     Route: 065
     Dates: start: 20180213, end: 20180213
  61. BETAXA [Concomitant]
     Route: 065
     Dates: start: 20131219
  62. ESSENTIALE FORTE [Concomitant]
     Route: 065
     Dates: start: 20171101, end: 20171228
  63. PLACEBO [Suspect]
     Active Substance: UNSPECIFIED INGREDIENT
     Dosage: WEEK 72, CYCLE 4
     Route: 042
     Dates: start: 20140729, end: 20140729
  64. PARALEN (CZECH REPUBLIC) [Concomitant]
     Dosage: BASELINE (WEEK 1)
     Route: 065
     Dates: start: 20130312
  65. PARALEN (CZECH REPUBLIC) [Concomitant]
     Dosage: WEEK 2
     Route: 065
     Dates: start: 20130327
  66. PARALEN (CZECH REPUBLIC) [Concomitant]
     Dosage: OPEN LABEL OCRELIZUMAB WEEK 48
     Route: 065
     Dates: start: 20160112
  67. PARALEN (CZECH REPUBLIC) [Concomitant]
     Dosage: OPEN LABEL OCRELIZUMAB WEEK 120
     Route: 065
     Dates: start: 20170525
  68. METHYLPREDNISOLONE. [Concomitant]
     Active Substance: METHYLPREDNISOLONE
     Dosage: OPEN LABEL OCRELIZUMAB WEEK 2
     Route: 065
     Dates: start: 20150224, end: 20150224
  69. ADVANTAN [Concomitant]
     Active Substance: METHYLPREDNISOLONE ACEPONATE
     Dosage: 1 GRAINS
     Route: 065
     Dates: start: 20130819, end: 201502
  70. WARFARIN [Concomitant]
     Active Substance: WARFARIN
     Route: 065
     Dates: start: 20150611, end: 20150614

REACTIONS (1)
  - Liver disorder [Recovered/Resolved]

NARRATIVE: CASE EVENT DATE: 20171030
